FAERS Safety Report 18840105 (Version 3)
Quarter: 2021Q1

REPORT INFORMATION
  Report Type: Report from Study
  Country: US (occurrence: US)
  Receive Date: 20210204
  Receipt Date: 20210301
  Transmission Date: 20210419
  Serious: Yes (Hospitalization)
  Sender: FDA-Public Use
  Company Number: US-AGIOS-2101US02490

PATIENT

DRUGS (1)
  1. TIBSOVO [Suspect]
     Active Substance: IVOSIDENIB
     Indication: CHOLANGIOCARCINOMA
     Dosage: 250 MILLIGRAM, BID
     Route: 048
     Dates: start: 20210122

REACTIONS (6)
  - Dyspnoea [Unknown]
  - Off label use [Unknown]
  - Abdominal pain upper [Unknown]
  - Malaise [Unknown]
  - Pain [Unknown]
  - Feeling abnormal [Unknown]
